FAERS Safety Report 10423792 (Version 1)
Quarter: 2014Q3

REPORT INFORMATION
  Report Type: Spontaneous
  Country: US (occurrence: None)
  Receive Date: 20140722
  Receipt Date: 20140722
  Transmission Date: 20150326
  Serious: Yes (Other)
  Sender: FDA-Public Use
  Company Number: AEGR000526

PATIENT
  Sex: Male
  Weight: 28.1 kg

DRUGS (7)
  1. ZETIA [Concomitant]
     Active Substance: EZETIMIBE
  2. ATENOLOL (ATENOLOL) [Concomitant]
     Active Substance: ATENOLOL
  3. JUXTAPID [Suspect]
     Active Substance: LOMITAPIDE MESYLATE
     Indication: TYPE IIA HYPERLIPIDAEMIA
     Route: 048
     Dates: start: 20130531
  4. PLAVIX (CLOPIDOGREL BISULFATE) [Concomitant]
  5. LIPITOR [Suspect]
     Active Substance: ATORVASTATIN CALCIUM
     Indication: PRODUCT USED FOR UNKNOWN INDICATION
     Dates: start: 20130531
  6. OMEGA 3-6-9 (FISH OIL, TOCOPHEROL) [Concomitant]
  7. VITAMIN E (TOCOPHERYL ACID SUCCINATE) [Concomitant]

REACTIONS (2)
  - Liver function test abnormal [None]
  - Drug administered to patient of inappropriate age [None]

NARRATIVE: CASE EVENT DATE: 2013
